FAERS Safety Report 16706645 (Version 1)
Quarter: 2019Q3

REPORT INFORMATION
  Report Type: Spontaneous
  Country: US (occurrence: US)
  Receive Date: 20190815
  Receipt Date: 20190815
  Transmission Date: 20191004
  Serious: No
  Sender: FDA-Public Use
  Company Number: US-PACIRA-201700119

PATIENT

DRUGS (1)
  1. EXPAREL [Suspect]
     Active Substance: BUPIVACAINE
     Indication: POSTOPERATIVE ANALGESIA
     Dates: start: 20170928, end: 20170928

REACTIONS (2)
  - Injection site erythema [Recovered/Resolved]
  - Injection site oedema [Recovered/Resolved]

NARRATIVE: CASE EVENT DATE: 20170928
